FAERS Safety Report 5929227-4 (Version None)
Quarter: 2008Q4

REPORT INFORMATION
  Report Type: 
  Country: None (occurrence: None)
  Receive Date: 20081020
  Receipt Date: 20081006
  Transmission Date: 20090506
  Serious: Yes (Death)
  Sender: FDA-Public Use
  Company Number: 004730

PATIENT
  Age: 11 Year
  Sex: Male

DRUGS (8)
  1. BUSULFEX [Suspect]
     Indication: STEM CELL TRANSPLANT
     Dosage: 5.83 ML, BID INTRAVENOUS; 5.83 ML, QD; INTRAVENOUS
     Route: 042
     Dates: start: 20061114, end: 20061114
  2. BUSULFEX [Suspect]
     Indication: STEM CELL TRANSPLANT
     Dosage: 5.83 ML, BID INTRAVENOUS; 5.83 ML, QD; INTRAVENOUS
     Route: 042
     Dates: start: 20061115, end: 20061117
  3. BUSULFEX [Suspect]
     Indication: STEM CELL TRANSPLANT
     Dosage: 5.83 ML, BID INTRAVENOUS; 5.83 ML, QD; INTRAVENOUS
     Route: 042
     Dates: start: 20061118, end: 20061118
  4. FILGRASTIM (FILGRASTIM) [Concomitant]
  5. CLONAZEPAM [Concomitant]
  6. CYCLOPHOSPHAMIDE [Concomitant]
  7. METHOTREXATE [Concomitant]
  8. TACROLIMUS [Concomitant]

REACTIONS (19)
  - ACUTE GRAFT VERSUS HOST DISEASE [None]
  - ALANINE AMINOTRANSFERASE INCREASED [None]
  - ANOREXIA [None]
  - ASPARTATE AMINOTRANSFERASE INCREASED [None]
  - CYTOMEGALOVIRUS ANTIGEN POSITIVE [None]
  - DIARRHOEA [None]
  - ENDOTOXIC SHOCK [None]
  - GAMMA-GLUTAMYLTRANSFERASE INCREASED [None]
  - HYPERTENSION [None]
  - HYPOCALCAEMIA [None]
  - HYPOMAGNESAEMIA [None]
  - HYPONATRAEMIA [None]
  - HYPOPROTEINAEMIA [None]
  - INFECTION [None]
  - MALAISE [None]
  - NAUSEA [None]
  - THROMBOTIC MICROANGIOPATHY [None]
  - URTICARIA [None]
  - VOMITING [None]
